FAERS Safety Report 9762817 (Version 1)
Quarter: 2013Q4

REPORT INFORMATION
  Report Type: Spontaneous
  Country: US (occurrence: US)
  Receive Date: 20131216
  Receipt Date: 20131216
  Transmission Date: 20140711
  Serious: Yes (Other)
  Sender: FDA-Public Use
  Company Number: US-ABBVIE-13P-163-1177632-00

PATIENT
  Sex: Female

DRUGS (4)
  1. VICODIN HP [Suspect]
     Indication: PRODUCT USED FOR UNKNOWN INDICATION
     Dates: start: 1989, end: 2003
  2. VICODIN HP [Suspect]
     Indication: PRODUCT USED FOR UNKNOWN INDICATION
     Dates: start: 2003, end: 200403
  3. VICODIN HP [Suspect]
     Dates: start: 200403
  4. UNKNOWN MEDICATION [Suspect]
     Indication: PRODUCT USED FOR UNKNOWN INDICATION
     Route: 050

REACTIONS (12)
  - Road traffic accident [Recovered/Resolved]
  - Cervical vertebral fracture [Unknown]
  - Intervertebral disc protrusion [Unknown]
  - Road traffic accident [Recovered/Resolved]
  - Cervical vertebral fracture [Unknown]
  - Intervertebral disc protrusion [Unknown]
  - Gait disturbance [Not Recovered/Not Resolved]
  - Spinal disorder [Not Recovered/Not Resolved]
  - Eye disorder [Not Recovered/Not Resolved]
  - Sciatica [Recovered/Resolved]
  - Condition aggravated [Not Recovered/Not Resolved]
  - Abdominal discomfort [Not Recovered/Not Resolved]
